FAERS Safety Report 5174388-0 (Version None)
Quarter: 2006Q4

REPORT INFORMATION
  Report Type: 
  Country: None (occurrence: None)
  Receive Date: 20061214
  Receipt Date: 20061206
  Transmission Date: 20070319
  Serious: Yes (Hospitalization)
  Sender: FDA-Public Use
  Company Number: US-ELI_LILLY_AND_COMPANY-US200612001184

PATIENT
  Age: 74 Year
  Sex: Male

DRUGS (4)
  1. HUMALOG [Suspect]
     Indication: DIABETES MELLITUS INSULIN-DEPENDENT
     Dosage: 5 U, EACH MORNING
     Route: 058
  2. HUMALOG [Suspect]
     Dosage: 8 U, EACH EVENING
     Route: 058
  3. HUMULIN N [Suspect]
     Indication: DIABETES MELLITUS INSULIN-DEPENDENT
     Dosage: 25 U, EACH MORNING
     Route: 058
  4. HUMULIN N [Suspect]
     Dosage: 30 U, OTHER
     Route: 058

REACTIONS (1)
  - CORONARY ARTERY OCCLUSION [None]
